FAERS Safety Report 19515377 (Version 1)
Quarter: 2021Q3

REPORT INFORMATION
  Report Type: Report from Study
  Country: AT (occurrence: AT)
  Receive Date: 20210710
  Receipt Date: 20210710
  Transmission Date: 20211014
  Serious: Yes (Other)
  Sender: FDA-Public Use
  Company Number: NVSC2021AT149918

PATIENT
  Age: 31 Year
  Sex: Male

DRUGS (1)
  1. METFORMIN [Suspect]
     Active Substance: METFORMIN HYDROCHLORIDE
     Indication: TYPE 2 DIABETES MELLITUS
     Route: 065

REACTIONS (8)
  - Hunger [Unknown]
  - Thirst [Unknown]
  - Transient ischaemic attack [Unknown]
  - Peripheral arterial occlusive disease [Unknown]
  - Hypoglycaemia [Unknown]
  - Coronary artery disease [Unknown]
  - Weight increased [Unknown]
  - Angina pectoris [Unknown]
